FAERS Safety Report 10543214 (Version 1)
Quarter: 2014Q4

REPORT INFORMATION
  Report Type: Spontaneous
  Country: CN (occurrence: CN)
  Receive Date: 20141027
  Receipt Date: 20141027
  Transmission Date: 20150529
  Serious: Yes (Other)
  Sender: FDA-Public Use
  Company Number: CN-ELI_LILLY_AND_COMPANY-CN201410006443

PATIENT
  Sex: Female
  Weight: 53 kg

DRUGS (1)
  1. CECLOR [Suspect]
     Active Substance: CEFACLOR
     Indication: BRONCHITIS
     Dosage: 1 DF, BID
     Route: 048
     Dates: start: 20140325, end: 20140325

REACTIONS (1)
  - Anaphylactic reaction [Recovered/Resolved]
